FAERS Safety Report 4692206-1 (Version None)
Quarter: 2005Q2

REPORT INFORMATION
  Report Type: 
  Country: None (occurrence: None)
  Receive Date: 20050614
  Receipt Date: 20050601
  Transmission Date: 20051028
  Serious: Yes (Other)
  Sender: FDA-Public Use
  Company Number: 2005084221

PATIENT
  Age: 49 Year
  Sex: Male

DRUGS (3)
  1. SOMAVERT [Suspect]
     Indication: ACROMEGALY
     Dosage: 15 MG DAILY SUBCUTANEOUS
     Route: 058
     Dates: start: 20040601
  2. HYDROCORTISONE ^NYCOMED^ [Concomitant]
  3. LEVAXIN (LEVOTHYROXINE SODIUM) [Concomitant]

REACTIONS (1)
  - PHLEBOTHROMBOSIS [None]
